FAERS Safety Report 18931736 (Version 1)
Quarter: 2021Q1

REPORT INFORMATION
  Report Type: Spontaneous
  Country: US (occurrence: US)
  Receive Date: 20210223
  Receipt Date: 20210223
  Transmission Date: 20210420
  Serious: No
  Sender: FDA-Public Use
  Company Number: US-IGSA-BIG0012041

PATIENT
  Age: 39 Year
  Sex: Female
  Weight: 78 kg

DRUGS (13)
  1. TOPAMAX [Concomitant]
     Active Substance: TOPIRAMATE
  2. PROMETHAZINE DM [Concomitant]
     Active Substance: DEXTROMETHORPHAN HYDROBROMIDE\PROMETHAZINE HYDROCHLORIDE
  3. PROLASTIN?C LIQUID [Suspect]
     Active Substance: .ALPHA.1-PROTEINASE INHIBITOR HUMAN
     Indication: ALPHA-1 ANTITRYPSIN DEFICIENCY
     Dosage: 4704 MILLIGRAM, Q.WK.
     Route: 042
     Dates: start: 20201105
  4. IMITREX DF [Concomitant]
     Active Substance: SUMATRIPTAN SUCCINATE
  5. TESTOSTERONE. [Concomitant]
     Active Substance: TESTOSTERONE
  6. VITAMIN B12 [Concomitant]
     Active Substance: CYANOCOBALAMIN
  7. VITAMIN D3 [Concomitant]
     Active Substance: CHOLECALCIFEROL
  8. XYZAL ALLERGY 24HR [Concomitant]
     Active Substance: LEVOCETIRIZINE DIHYDROCHLORIDE
  9. STAHIST AD [Concomitant]
     Active Substance: CHLORCYCLIZINE HYDROCHLORIDE\PSEUDOEPHEDRINE HYDROCHLORIDE
  10. PROMETHAZINE HCL [Concomitant]
     Active Substance: PROMETHAZINE HYDROCHLORIDE
  11. SYMBICORT [Concomitant]
     Active Substance: BUDESONIDE\FORMOTEROL FUMARATE DIHYDRATE
  12. ALBUTEROL SULFATE HFA [Concomitant]
     Active Substance: ALBUTEROL SULFATE
  13. ROBAXIN [Concomitant]
     Active Substance: METHOCARBAMOL

REACTIONS (3)
  - Migraine [Recovering/Resolving]
  - Flushing [Not Recovered/Not Resolved]
  - Chills [Not Recovered/Not Resolved]

NARRATIVE: CASE EVENT DATE: 20201105
